FAERS Safety Report 7647779-3 (Version None)
Quarter: 2011Q3

REPORT INFORMATION
  Report Type: 
  Country: None (occurrence: None)
  Receive Date: 20110726
  Receipt Date: 20110718
  Transmission Date: 20111222
  Serious: Yes (Death, Life-Threatening)
  Sender: FDA-Public Use
  Company Number: 2008003320

PATIENT
  Age: 73 Year
  Sex: Male
  Weight: 61 kg

DRUGS (9)
  1. TAXOTERE [Suspect]
     Indication: LUNG SQUAMOUS CELL CARCINOMA STAGE UNSPECIFIED
     Dosage: IV DRIP
     Route: 041
     Dates: start: 20080616, end: 20080826
  2. BIO THREE (CLOSTRIDIUM BUTYRICUM, LACTOBACILLUS ACIDOPHILUS, SACCHAROM [Concomitant]
  3. ERLOTINIB HYDROCHLORIDE [Suspect]
     Indication: LUNG SQUAMOUS CELL CARCINOMA STAGE UNSPECIFIED
     Dosage: 150 MG, UID/QD, ORAL
     Route: 048
     Dates: start: 20081118, end: 20081128
  4. BLOPRESS (CANDESARTAN CILEXETIL) [Concomitant]
  5. LOXOPROFEN [Concomitant]
  6. MUCOSTA (REBAMIPIDE) [Concomitant]
  7. AMLODIPINE [Concomitant]
  8. CODEINE SULFATE [Concomitant]
  9. LENDORM [Concomitant]

REACTIONS (25)
  - INTERSTITIAL LUNG DISEASE [None]
  - VENTRICULAR HYPERTROPHY [None]
  - RENAL ARTERY ARTERIOSCLEROSIS [None]
  - MORAXELLA TEST POSITIVE [None]
  - VENTRICULAR EXTRASYSTOLES [None]
  - CEREBRAL ARTERIOSCLEROSIS [None]
  - BRONCHOPNEUMONIA [None]
  - AORTIC ARTERIOSCLEROSIS [None]
  - LYMPHANGIOSIS CARCINOMATOSA [None]
  - CEREBRAL INFARCTION [None]
  - HYPERTENSION [None]
  - PLEURAL EFFUSION [None]
  - PSEUDOMONAS TEST POSITIVE [None]
  - RESPIRATORY FAILURE [None]
  - NON-SMALL CELL LUNG CANCER METASTATIC [None]
  - NEOPLASM PROGRESSION [None]
  - DISSEMINATED INTRAVASCULAR COAGULATION [None]
  - CAROTID ARTERIOSCLEROSIS [None]
  - APPENDICECTOMY [None]
  - EMPHYSEMA [None]
  - ARTERIOSCLEROSIS CORONARY ARTERY [None]
  - CAROTID ARTERY STENOSIS [None]
  - ANTIBIOTIC RESISTANT STAPHYLOCOCCUS TEST POSITIVE [None]
  - DIFFUSE ALVEOLAR DAMAGE [None]
  - PROSTATE CANCER [None]
